FAERS Safety Report 9560510 (Version 1)
Quarter: 2013Q3

REPORT INFORMATION
  Report Type: Spontaneous
  Country: US (occurrence: None)
  Receive Date: 20130909
  Receipt Date: 20130909
  Transmission Date: 20140515
  Serious: Yes (Hospitalization)
  Sender: FDA-Public Use
  Company Number: 376149

PATIENT
  Age: 74 Year
  Sex: Female
  Weight: 73 kg

DRUGS (13)
  1. VICTOZA (LIRAGLUTIDE) SOLUTION FOR INJECTION, 6MG/ML [Suspect]
     Indication: TYPE 2 DIABETES MELLITUS
     Route: 058
     Dates: start: 20130321, end: 20130327
  2. ALLOPURINOL [Concomitant]
  3. AMLODIPINE [Concomitant]
  4. ATENOLOL [Concomitant]
  5. DIPHENOXYLATE/ATROPINE (ATROPINE SULFATE, DIPHENOXYLATE HYDROCHLORIDE) [Concomitant]
  6. LANTUS (INSULIN GLARGINE) [Concomitant]
  7. LOSARTAN [Concomitant]
  8. PRAVASTATIN [Concomitant]
  9. PROLIA (DENOSUMAB) [Concomitant]
  10. TIMOLOL [Concomitant]
  11. VITAMIN D /00107901/ (ERGOCALCIFEROL) [Concomitant]
  12. MULTIVITAMIN /00097801/ (ASCORBIC ACID, CALCIUM PANTOTHENATE, ERGOCALCIFEROL, NICOTINAMIDE, PYRIDOXINE HYDROCHLORIDE, RETINOL, RIBOFLAVIN, THIAMINE HYDROCHLORIDE) [Concomitant]
  13. CINNAMON /01647501/ (CINNAMOMUM VERUM) [Concomitant]

REACTIONS (1)
  - Pancreatitis acute [None]
